FAERS Safety Report 4306814-0 (Version None)
Quarter: 2004Q1

REPORT INFORMATION
  Report Type: 
  Country: None (occurrence: None)
  Receive Date: 20040227
  Receipt Date: 20040216
  Transmission Date: 20041129
  Serious: Yes (Hospitalization)
  Sender: FDA-Public Use
  Company Number: FR-BRISTOL-MYERS SQUIBB COMPANY-12517041

PATIENT
  Age: 14 Day
  Sex: Female

DRUGS (11)
  1. ENDOXAN [Suspect]
     Route: 064
     Dates: start: 20031211, end: 20031211
  2. DOXORUBICIN HCL [Suspect]
     Route: 064
     Dates: start: 20031211, end: 20031211
  3. METHOTREXATE [Suspect]
     Route: 064
     Dates: start: 20031223, end: 20031223
  4. ARACYTINE [Suspect]
     Route: 064
     Dates: start: 20031223, end: 20031223
  5. MOPRAL [Suspect]
     Route: 064
     Dates: start: 20031223, end: 20031225
  6. NEUPOGEN [Suspect]
     Route: 064
     Dates: start: 20031223, end: 20031225
  7. CORTANCYL [Concomitant]
     Route: 050
     Dates: start: 20031211
  8. DEPO-MEDROL [Concomitant]
     Route: 050
     Dates: start: 20031211, end: 20031223
  9. TAZOCILLINE [Concomitant]
     Route: 064
     Dates: start: 20031223, end: 20031225
  10. ONCOVIN [Concomitant]
     Route: 064
     Dates: start: 20031211
  11. SOLU-MEDROL [Concomitant]
     Route: 064
     Dates: start: 20031223, end: 20031225

REACTIONS (7)
  - COMPLICATIONS OF MATERNAL EXPOSURE TO THERAPEUTIC DRUGS [None]
  - GAMMA-GLUTAMYLTRANSFERASE INCREASED [None]
  - HYPERBILIRUBINAEMIA [None]
  - JAUNDICE [None]
  - JAUNDICE NEONATAL [None]
  - MATERNAL DRUGS AFFECTING FOETUS [None]
  - PREGNANCY [None]
